FAERS Safety Report 9370402 (Version 1)
Quarter: 2013Q2

REPORT INFORMATION
  Report Type: Spontaneous
  Country: US (occurrence: US)
  Receive Date: 20130626
  Receipt Date: 20130626
  Transmission Date: 20140414
  Serious: Yes (Death, Hospitalization)
  Sender: FDA-Public Use
  Company Number: US-GLAXOSMITHKLINE-A0778552A

PATIENT
  Sex: Male

DRUGS (10)
  1. AVANDIA [Suspect]
     Indication: DIABETES MELLITUS
     Dosage: 4MG PER DAY
     Route: 048
     Dates: start: 20061129, end: 20070511
  2. AVANDAMET [Suspect]
     Indication: DIABETES MELLITUS
     Route: 048
     Dates: start: 20031013
  3. METOPROLOL [Concomitant]
  4. HCTZ [Concomitant]
  5. LOTREL [Concomitant]
  6. OMEPRAZOLE [Concomitant]
  7. VYTORIN [Concomitant]
  8. LEVITRA [Concomitant]
  9. CHANTIX [Concomitant]
  10. TESTOSTERONE [Concomitant]

REACTIONS (3)
  - Myocardial infarction [Fatal]
  - Arteriosclerosis coronary artery [Unknown]
  - Cardiac failure congestive [Unknown]
